FAERS Safety Report 15608571 (Version 1)
Quarter: 2018Q4

REPORT INFORMATION
  Report Type: Spontaneous
  Country: TR (occurrence: TR)
  Receive Date: 20181112
  Receipt Date: 20181112
  Transmission Date: 20190205
  Serious: Yes (Hospitalization, Other)
  Sender: FDA-Public Use
  Company Number: TR-SA-2018SA255171

PATIENT
  Age: 10 Year
  Sex: Male

DRUGS (3)
  1. RANITIDINE. [Suspect]
     Active Substance: RANITIDINE
     Dosage: RANITIDINE WAS INJECTED AT A DOSE OF 4 MG/KG/DAY IN FOUR DIVIDED DOSES BY INTRAVENOUS ROUTE
     Route: 042
  2. DIAZEPAM. [Concomitant]
     Active Substance: DIAZEPAM
     Indication: DYSTONIA
     Dosage: HAS BEEN RECEIVING IT FROM THE LAST 6 YEARS
  3. BACLOFEN. [Concomitant]
     Active Substance: BACLOFEN
     Indication: DYSTONIA
     Dosage: HAS BEEN RECEIVING IT FROM THE LAST 6 YEARS

REACTIONS (3)
  - Hypotension [Recovered/Resolved]
  - Bradycardia [Recovered/Resolved]
  - Electrocardiogram low voltage [Recovering/Resolving]
